FAERS Safety Report 14148432 (Version 1)
Quarter: 2017Q4

REPORT INFORMATION
  Report Type: Spontaneous
  Country: US (occurrence: None)
  Receive Date: 20171031
  Receipt Date: 20171031
  Transmission Date: 20180321
  Serious: No
  Sender: FDA-Public Use
  Company Number: None

PATIENT
  Age: 48 Year
  Sex: Male

DRUGS (1)
  1. IMATINIB MES TAB 100MG [Suspect]
     Active Substance: IMATINIB MESYLATE
     Route: 048

REACTIONS (4)
  - Hyperhidrosis [None]
  - Muscle spasms [None]
  - Diarrhoea [None]
  - Paraesthesia [None]

NARRATIVE: CASE EVENT DATE: 20171025
